FAERS Safety Report 6051027-8 (Version None)
Quarter: 2009Q1

REPORT INFORMATION
  Report Type: 
  Country: None (occurrence: None)
  Receive Date: 20090121
  Receipt Date: 20090121
  Transmission Date: 20090719
  Serious: No
  Sender: FDA-Public Use
  Company Number: None

PATIENT
  Sex: Male
  Weight: 128.8216 kg

DRUGS (2)
  1. AMIFOSTINE [Suspect]
     Indication: DRY MOUTH
     Dosage: 500MG M-F SQ 9 DOSES
     Route: 058
     Dates: start: 20081230
  2. AMIFOSTINE [Suspect]
     Indication: HEAD AND NECK CANCER
     Dosage: 500MG M-F SQ 9 DOSES
     Route: 058
     Dates: start: 20081230

REACTIONS (1)
  - RASH MACULAR [None]
